FAERS Safety Report 5637666-4 (Version None)
Quarter: 2008Q1

REPORT INFORMATION
  Report Type: 
  Country: None (occurrence: None)
  Receive Date: 20080225
  Receipt Date: 20080219
  Transmission Date: 20080703
  Serious: Yes (Life-Threatening, Hospitalization)
  Sender: FDA-Public Use
  Company Number: JP-GENENTECH-255393

PATIENT
  Sex: Female

DRUGS (3)
  1. GRTPA [Suspect]
     Indication: EXTRADURAL HAEMATOMA
     Dosage: 0.6 MG/KG, UNK
     Route: 042
     Dates: start: 20071218
  2. CEFAMEZIN [Concomitant]
     Indication: DRUG USE FOR UNKNOWN INDICATION
     Dosage: 2 G, QD
     Route: 065
  3. OMEPRAZOLE [Concomitant]
     Indication: DRUG USE FOR UNKNOWN INDICATION
     Dosage: 20 G, QD
     Route: 065

REACTIONS (2)
  - QUADRIPARESIS [None]
  - SPINAL HAEMATOMA [None]
